FAERS Safety Report 5794930-6 (Version None)
Quarter: 2008Q2

REPORT INFORMATION
  Report Type: 
  Country: None (occurrence: None)
  Receive Date: 20080630
  Receipt Date: 20080619
  Transmission Date: 20081010
  Serious: Yes (Hospitalization, Disabling)
  Sender: FDA-Public Use
  Company Number: JP-VALEANT-2008VX001303

PATIENT
  Age: 59 Year
  Sex: Female

DRUGS (3)
  1. PERMAX [Suspect]
     Indication: PARKINSON'S DISEASE
     Route: 048
     Dates: end: 20070101
  2. LEVODOPA [Concomitant]
     Route: 065
  3. AMANTADINE HCL [Concomitant]
     Route: 065

REACTIONS (8)
  - DRUG EFFECT DECREASED [None]
  - DYSKINESIA [None]
  - HYPOAESTHESIA [None]
  - LIMB DISCOMFORT [None]
  - ON AND OFF PHENOMENON [None]
  - PRURITUS [None]
  - RESTLESS LEGS SYNDROME [None]
  - SENSORY DISTURBANCE [None]
